FAERS Safety Report 8045796-5 (Version None)
Quarter: 2012Q1

REPORT INFORMATION
  Report Type: 
  Country: None (occurrence: None)
  Receive Date: 20120113
  Receipt Date: 20120111
  Transmission Date: 20120608
  Serious: Yes (Other)
  Sender: FDA-Public Use
  Company Number: JP-ROCHE-1029500

PATIENT

DRUGS (2)
  1. COPEGUS [Suspect]
     Indication: HEPATITIS C
     Dosage: DOSAGE IS UNCERTAIN.
     Route: 048
  2. PEGASYS [Suspect]
     Indication: HEPATITIS C
     Dosage: DOSAGE IS UNCERTAIN.
     Route: 058

REACTIONS (1)
  - EMBOLISM VENOUS [None]
